FAERS Safety Report 4272848-8 (Version None)
Quarter: 2004Q1

REPORT INFORMATION
  Report Type: 
  Country: None (occurrence: None)
  Receive Date: 20040114
  Receipt Date: 20031215
  Transmission Date: 20041129
  Serious: No
  Sender: FDA-Public Use
  Company Number: 2003UW16660

PATIENT
  Sex: Female

DRUGS (11)
  1. SEROQUEL [Suspect]
     Indication: DRUG WITHDRAWAL SYNDROME
     Dates: start: 20010601, end: 20010101
  2. SEROQUEL [Suspect]
     Indication: DRUG WITHDRAWAL SYNDROME
     Dosage: 400 MG DAILY PO
     Route: 048
     Dates: start: 20011018, end: 20020101
  3. SEROQUEL [Suspect]
     Indication: DRUG WITHDRAWAL SYNDROME
     Dosage: 225 MG DAILY PO
     Route: 048
     Dates: start: 20030301, end: 20030701
  4. SEROQUEL [Suspect]
     Indication: DRUG WITHDRAWAL SYNDROME
     Dosage: 300 MG DAILY PO
     Route: 048
     Dates: start: 20031201
  5. AMBIEN [Concomitant]
  6. SERZONE [Concomitant]
  7. ZYPREXA [Concomitant]
  8. EFFEXOR XR [Concomitant]
  9. KLONOPIN [Concomitant]
  10. ABILIFY [Concomitant]
  11. ZOLOFT [Concomitant]

REACTIONS (32)
  - ABDOMINAL DISTENSION [None]
  - AMNESIA [None]
  - ANGER [None]
  - ANXIETY [None]
  - CHEST PAIN [None]
  - CONFUSIONAL STATE [None]
  - CONSTIPATION [None]
  - DEPRESSION [None]
  - DISTURBANCE IN ATTENTION [None]
  - DIZZINESS POSTURAL [None]
  - DRY MOUTH [None]
  - DYSPEPSIA [None]
  - FATIGUE [None]
  - FEAR [None]
  - HALLUCINATION [None]
  - HALLUCINATION, AUDITORY [None]
  - HEART RATE INCREASED [None]
  - HYPOAESTHESIA [None]
  - HYPOTENSION [None]
  - IMPAIRED DRIVING ABILITY [None]
  - INDIFFERENCE [None]
  - MUSCLE SPASMS [None]
  - MUSCULOSKELETAL STIFFNESS [None]
  - NERVOUS SYSTEM DISORDER [None]
  - PANIC ATTACK [None]
  - PARAESTHESIA [None]
  - PSYCHOTIC DISORDER [None]
  - SUICIDAL IDEATION [None]
  - TREATMENT NONCOMPLIANCE [None]
  - TREMOR [None]
  - WEIGHT INCREASED [None]
  - WEIGHT LOSS POOR [None]
